FAERS Safety Report 5115698-2 (Version None)
Quarter: 2006Q3

REPORT INFORMATION
  Report Type: 
  Country: None (occurrence: None)
  Receive Date: 20060927
  Receipt Date: 20051103
  Transmission Date: 20061208
  Serious: Yes (Hospitalization, Disabling)
  Sender: FDA-Public Use
  Company Number: US-ROCHE-423639

PATIENT
  Age: 24 Year
  Sex: Female
  Weight: 61.2 kg

DRUGS (2)
  1. ACCUTANE [Suspect]
     Route: 048
     Dates: start: 19900215, end: 19900802
  2. DEMULEN 1/35-21 [Concomitant]
     Dates: start: 19850615, end: 19900815

REACTIONS (25)
  - ANHEDONIA [None]
  - ANXIETY [None]
  - ARRHYTHMIA [None]
  - ASTHMA [None]
  - AUTOIMMUNE THYROIDITIS [None]
  - BACK INJURY [None]
  - COLITIS [None]
  - CROHN'S DISEASE [None]
  - DEPRESSION [None]
  - EPICONDYLITIS [None]
  - EUSTACHIAN TUBE DISORDER [None]
  - EUSTACHIAN TUBE DYSFUNCTION [None]
  - GASTROINTESTINAL DISORDER [None]
  - GASTROOESOPHAGEAL REFLUX DISEASE [None]
  - HERPES SIMPLEX [None]
  - HERPES ZOSTER [None]
  - INFLAMMATORY BOWEL DISEASE [None]
  - INTESTINAL HAEMORRHAGE [None]
  - IRRITABLE BOWEL SYNDROME [None]
  - OTITIS MEDIA [None]
  - PAIN IN EXTREMITY [None]
  - RAYNAUD'S PHENOMENON [None]
  - RIB FRACTURE [None]
  - SJOGREN'S SYNDROME [None]
  - TENDONITIS [None]
